FAERS Safety Report 8971711 (Version 2)
Quarter: 2012Q4

REPORT INFORMATION
  Report Type: 
  Country: FR (occurrence: FR)
  Receive Date: 20121217
  Receipt Date: 20121228
  Transmission Date: 20130627
  Serious: Yes (Life-Threatening)
  Sender: FDA-Public Use
  Company Number: FR-ASTRAZENECA-2012SE93150

PATIENT
  Age: 82 Year
  Sex: Male
  Weight: 48 kg

DRUGS (2)
  1. LIDOCAINE [Suspect]
     Indication: ANAESTHESIA
     Route: 049
  2. LIDOCAINE ADRENALINE [Suspect]
     Indication: ANAESTHESIA
     Dosage: 50 ML OF SALINE AND THEN 20 ML OF LIDOCAINE 2% WITH EPINEPHRINE 400 MG OF LIDOCAINE AND

REACTIONS (7)
  - Convulsion [Recovered/Resolved]
  - Loss of consciousness [Recovered/Resolved]
  - Bradycardia [Recovered/Resolved]
  - Hypotension [Recovered/Resolved]
  - Toxicity to various agents [Unknown]
  - Malaise [Recovered/Resolved]
  - Clonus [Recovered/Resolved]
